FAERS Safety Report 12653427 (Version 1)
Quarter: 2016Q3

REPORT INFORMATION
  Report Type: Spontaneous
  Country: US (occurrence: US)
  Receive Date: 20160815
  Receipt Date: 20160815
  Transmission Date: 20161109
  Serious: No
  Sender: FDA-Public Use
  Company Number: US-DEPOMED, INC.-US-2016DEP007975

PATIENT
  Sex: Female

DRUGS (2)
  1. CAMBIA [Suspect]
     Active Substance: DICLOFENAC POTASSIUM
     Indication: HEADACHE
     Dosage: DF
     Dates: start: 201509
  2. CAMBIA [Suspect]
     Active Substance: DICLOFENAC POTASSIUM
     Indication: MIGRAINE

REACTIONS (1)
  - Off label use [Unknown]

NARRATIVE: CASE EVENT DATE: 201509
